FAERS Safety Report 4704797-2 (Version None)
Quarter: 2005Q2

REPORT INFORMATION
  Report Type: 
  Country: None (occurrence: None)
  Receive Date: 20050630
  Receipt Date: 20050614
  Transmission Date: 20051028
  Serious: Yes (Other)
  Sender: FDA-Public Use
  Company Number: 280001L05USA

PATIENT
  Age: 43 Year
  Sex: Female

DRUGS (3)
  1. HUMAN FOLLICLE STIMULATING HORMONE (UROFOLLITROPIN) [Suspect]
     Indication: OVARIAN HYPERSTIMULATION SYNDROME
  2. HUMAN MENOPAUSAL GONADROTROPIN (MENOTROPHIN) [Suspect]
     Indication: OVARIAN HYPERSTIMULATION SYNDROME
  3. RECOMBINANT HUMAN FOLLICATE STIMULATING HORMONE (FOLLITROPIN ALFA) [Suspect]
     Indication: OVARIAN HYPERSTIMULATION SYNDROME

REACTIONS (1)
  - MULTIPLE PREGNANCY [None]
